FAERS Safety Report 20600559 (Version 1)
Quarter: 2022Q1

REPORT INFORMATION
  Report Type: Spontaneous
  Country: ES (occurrence: ES)
  Receive Date: 20220316
  Receipt Date: 20220316
  Transmission Date: 20220423
  Serious: Yes (Other)
  Sender: FDA-Public Use
  Company Number: ES-ALKEM LABORATORIES LIMITED-ES-ALKEM-2022-01914

PATIENT
  Age: 84 Year
  Sex: Female

DRUGS (1)
  1. CEFUROXIME AXETIL [Suspect]
     Active Substance: CEFUROXIME AXETIL
     Indication: Endophthalmitis
     Dosage: 12.5 MG/0.1ML

REACTIONS (4)
  - Anterior chamber inflammation [Unknown]
  - Overdose [Unknown]
  - Product preparation issue [Unknown]
  - Corneal oedema [Unknown]
